FAERS Safety Report 24852483 (Version 1)
Quarter: 2025Q1

REPORT INFORMATION
  Report Type: Spontaneous
  Country: US (occurrence: US)
  Receive Date: 20250116
  Receipt Date: 20250116
  Transmission Date: 20250409
  Serious: No
  Sender: SK LIFE SCIENCE
  Company Number: US-SK LIFE SCIENCE, INC-SKPVG-2024-002324

PATIENT

DRUGS (6)
  1. XCOPRI [Suspect]
     Active Substance: CENOBAMATE
     Indication: Epilepsy
     Route: 048
     Dates: start: 2020
  2. XCOPRI [Suspect]
     Active Substance: CENOBAMATE
     Dosage: 137.5 MILLIGRAM, DAILY AT NIGHT (ONE 12.5 MG TABLET, ONE 25 MG TABLET, AND ONE 100 MG TABLET)
     Route: 048
  3. XCOPRI [Suspect]
     Active Substance: CENOBAMATE
     Dosage: 137.5 MILLIGRAM, DAILY AT NIGHT (ONE 12.5 MG TABLET, ONE 25 MG TABLET, AND ONE 100 MG TABLET)
     Route: 048
  4. XCOPRI [Suspect]
     Active Substance: CENOBAMATE
     Dosage: 137.5 MILLIGRAM, DAILY AT NIGHT (ONE 12.5 MG TABLET, ONE 25 MG TABLET, AND ONE 100 MG TABLET)
     Route: 048
  5. BRIVIACT [Concomitant]
     Active Substance: BRIVARACETAM
     Indication: Seizure
     Route: 065
  6. ONFI [Concomitant]
     Active Substance: CLOBAZAM
     Indication: Seizure
     Route: 065

REACTIONS (2)
  - Aura [Not Recovered/Not Resolved]
  - Off label use [Unknown]
